FAERS Safety Report 19836601 (Version 2)
Quarter: 2021Q3

REPORT INFORMATION
  Report Type: Spontaneous
  Country: JP (occurrence: JP)
  Receive Date: 20210914
  Receipt Date: 20210930
  Transmission Date: 20211014
  Serious: No
  Sender: FDA-Public Use
  Company Number: JP-GILEAD-2021-0547777

PATIENT
  Age: 57 Year
  Sex: Female
  Weight: 65.7 kg

DRUGS (15)
  1. SOLU?MEDROL [Concomitant]
     Active Substance: METHYLPREDNISOLONE SODIUM SUCCINATE
     Dosage: 150 MG
     Route: 041
     Dates: start: 20210813, end: 20210817
  2. METOCLOPRAMIDE. [Concomitant]
     Active Substance: METOCLOPRAMIDE
     Dosage: 15 MG, TID
     Route: 048
     Dates: start: 20210815, end: 20210823
  3. VEKLURY [Suspect]
     Active Substance: REMDESIVIR
     Indication: COVID-19
     Dosage: 200 MG
     Route: 041
     Dates: start: 20210810, end: 20210810
  4. SOLU?MEDROL [Concomitant]
     Active Substance: METHYLPREDNISOLONE SODIUM SUCCINATE
     Dosage: 62.5 MG
     Route: 041
     Dates: start: 20210818, end: 20210820
  5. MICAFUNGIN SODIUM [Concomitant]
     Active Substance: MICAFUNGIN SODIUM
     Dosage: 150 MG
     Route: 041
     Dates: start: 20210816, end: 20210901
  6. RISPERDAL [Concomitant]
     Active Substance: RISPERIDONE
     Dosage: 1 ML, BID
     Route: 048
     Dates: start: 20210817, end: 20210901
  7. VEKLURY [Suspect]
     Active Substance: REMDESIVIR
     Dosage: 100 MG
     Route: 041
     Dates: start: 20210811, end: 20210817
  8. DEXART [Concomitant]
     Active Substance: DEXAMETHASONE SODIUM PHOSPHATE
     Dosage: 6.6 MG
     Route: 041
     Dates: start: 20210810, end: 20210812
  9. ROZEREM [Concomitant]
     Active Substance: RAMELTEON
     Dosage: 8 MG, QHS
     Route: 048
     Dates: start: 20210814, end: 20210824
  10. MAGMITT [Concomitant]
     Active Substance: MAGNESIUM OXIDE
     Dosage: 1660 MG, QHS
     Route: 048
     Dates: start: 20210814
  11. BELSOMRA [Concomitant]
     Active Substance: SUVOREXANT
     Dosage: 20 MG, QHS
     Route: 048
     Dates: start: 20210814, end: 20210824
  12. HEPARIN SODIUM. [Concomitant]
     Active Substance: HEPARIN SODIUM
     Dosage: 1000 UNITS
     Dates: start: 20210810
  13. ACTEMRA [Concomitant]
     Active Substance: TOCILIZUMAB
     Dosage: 162 MG
     Route: 041
     Dates: start: 20210813, end: 20210813
  14. LANSOPRAZOLE. [Concomitant]
     Active Substance: LANSOPRAZOLE
     Dosage: 15 MG, QD
     Route: 048
     Dates: start: 20210814
  15. CEFOTAXIME SODIUM [Concomitant]
     Active Substance: CEFOTAXIME SODIUM
     Dosage: 3 G
     Route: 041
     Dates: start: 20210822, end: 20210831

REACTIONS (2)
  - Blood pressure decreased [Recovered/Resolved]
  - Bradycardia [Recovered/Resolved]

NARRATIVE: CASE EVENT DATE: 20210817
